FAERS Safety Report 16255220 (Version 1)
Quarter: 2019Q2

REPORT INFORMATION
  Report Type: Report from Study
  Country: FR (occurrence: FR)
  Receive Date: 20190430
  Receipt Date: 20190430
  Transmission Date: 20190711
  Serious: Yes (Life-Threatening, Hospitalization, Other)
  Sender: FDA-Public Use
  Company Number: FR-BRISTOL-MYERS SQUIBB COMPANY-BMS-2019-040670

PATIENT
  Age: 5 Year
  Sex: Female

DRUGS (3)
  1. SOLUPRED                           /00016201/ [Concomitant]
     Active Substance: PREDNISOLONE
     Indication: NEUROLOGICAL SYMPTOM
     Dosage: 40 MILLIGRAM
     Route: 048
     Dates: start: 20190314
  2. DASATINIB. [Suspect]
     Active Substance: DASATINIB
     Indication: BRAIN STEM GLIOMA
     Dosage: 70 MILLIGRAM
     Route: 048
     Dates: start: 20190410, end: 20190417
  3. ZOPHREN                            /00955301/ [Concomitant]
     Active Substance: ONDANSETRON
     Indication: VOMITING
     Dosage: 8 MILLIGRAM
     Route: 048
     Dates: start: 201904

REACTIONS (4)
  - Dyspnoea [Recovered/Resolved]
  - Neurological symptom [Unknown]
  - Brain oedema [Unknown]
  - Increased upper airway secretion [Unknown]

NARRATIVE: CASE EVENT DATE: 20190417
